FAERS Safety Report 17551956 (Version 3)
Quarter: 2020Q2

REPORT INFORMATION
  Report Type: Report from Study
  Country: CO (occurrence: CO)
  Receive Date: 20200317
  Receipt Date: 20200424
  Transmission Date: 20200713
  Serious: Yes (Other)
  Sender: FDA-Public Use
  Company Number: CO-AMGEN-COLSL2020044072

PATIENT
  Age: 41 Year
  Sex: Female

DRUGS (1)
  1. NPLATE [Suspect]
     Active Substance: ROMIPLOSTIM
     Indication: IMMUNE THROMBOCYTOPENIA
     Dosage: 250 MICROGRAM, QWK
     Route: 058
     Dates: start: 20161027

REACTIONS (5)
  - Muscle spasms [Recovering/Resolving]
  - Contusion [Recovering/Resolving]
  - Thrombosis [Recovering/Resolving]
  - Headache [Recovering/Resolving]
  - Pain in extremity [Recovering/Resolving]

NARRATIVE: CASE EVENT DATE: 20200218
